FAERS Safety Report 6467298-X (Version None)
Quarter: 2009Q4

REPORT INFORMATION
  Report Type: 
  Country: None (occurrence: None)
  Receive Date: 20091202
  Receipt Date: 20091125
  Transmission Date: 20100525
  Serious: Yes (Death, Other)
  Sender: FDA-Public Use
  Company Number: ES-BRISTOL-MYERS SQUIBB COMPANY-14774962

PATIENT
  Age: 78 Year
  Sex: Male

DRUGS (2)
  1. DASATINIB [Suspect]
     Indication: ACUTE LYMPHOCYTIC LEUKAEMIA
     Dosage: START DATE:JUNE/JULY2009 RESTARTED WITH 100MG
     Dates: start: 20090101, end: 20090101
  2. HYDREA [Suspect]

REACTIONS (8)
  - AGITATION [None]
  - CARDIAC ARREST [None]
  - DRUG INTOLERANCE [None]
  - EYELID OEDEMA [None]
  - LEUKOCYTOSIS [None]
  - LYMPHOPENIA [None]
  - MALAISE [None]
  - SEROSITIS [None]
